FAERS Safety Report 14004633 (Version 1)
Quarter: 2017Q3

REPORT INFORMATION
  Report Type: Spontaneous
  Country: IT (occurrence: IT)
  Receive Date: 20170922
  Receipt Date: 20170922
  Transmission Date: 20171128
  Serious: Yes (Other)
  Sender: FDA-Public Use
  Company Number: IT-HETERO-HET2017IT00209

PATIENT

DRUGS (2)
  1. LEVOFLOXACIN. [Concomitant]
     Active Substance: LEVOFLOXACIN
     Dosage: 500 MG, BID
     Route: 065
  2. LINEZOLID. [Suspect]
     Active Substance: LINEZOLID
     Indication: INFLAMMATION
     Dosage: 600 MG, QD
     Route: 065

REACTIONS (2)
  - Toxicity to various agents [Recovering/Resolving]
  - Bone marrow failure [Recovering/Resolving]
